FAERS Safety Report 5239859-7 (Version None)
Quarter: 2007Q1

REPORT INFORMATION
  Report Type: 
  Country: None (occurrence: None)
  Receive Date: 20070216
  Receipt Date: 20070212
  Transmission Date: 20070707
  Serious: Yes (Life-Threatening)
  Sender: FDA-Public Use
  Company Number: SK-BOEHRINGER INGELHEIM PHARMACEUTICALS, INC.-2007-AP-00055AP

PATIENT
  Age: 68 Year
  Sex: Male

DRUGS (7)
  1. ATROVENT [Suspect]
     Route: 048
     Dates: start: 20060701, end: 20061218
  2. RULID [Suspect]
     Indication: LEUKOCYTOSIS
     Route: 048
     Dates: start: 20061217, end: 20061218
  3. CORVITOL [Suspect]
     Route: 048
     Dates: start: 20060701, end: 20061218
  4. LUSOPRESS [Concomitant]
     Route: 048
  5. DIROTON [Concomitant]
     Route: 048
  6. AGAPURIN RETARD [Concomitant]
     Route: 048
  7. ANOPYRIN [Concomitant]
     Route: 048

REACTIONS (3)
  - HEPATORENAL FAILURE [None]
  - RENAL FAILURE ACUTE [None]
  - RHABDOMYOLYSIS [None]
